FAERS Safety Report 6110585-5 (Version None)
Quarter: 2009Q1

REPORT INFORMATION
  Report Type: 
  Country: None (occurrence: None)
  Receive Date: 20090310
  Receipt Date: 20090226
  Transmission Date: 20090719
  Serious: Yes (Other)
  Sender: FDA-Public Use
  Company Number: AU-JNJCH-2009005860

PATIENT
  Sex: Female

DRUGS (1)
  1. LISTERINE MAXIMUM DEFENSE TOOTHPASTE-GEL [Suspect]
     Indication: DENTAL DISORDER PROPHYLAXIS
     Dosage: TEXT:UNSPECIFIED
     Route: 048

REACTIONS (3)
  - APPLICATION SITE BURN [None]
  - GLOSSODYNIA [None]
  - ORAL PAIN [None]
